FAERS Safety Report 16196619 (Version 2)
Quarter: 2019Q2

REPORT INFORMATION
  Report Type: Spontaneous
  Country: FR (occurrence: FR)
  Receive Date: 20190415
  Receipt Date: 20190628
  Transmission Date: 20190711
  Serious: Yes (Death, Life-Threatening, Other)
  Sender: FDA-Public Use
  Company Number: FR-BAYER-2019-069202

PATIENT
  Age: 45 Year
  Sex: Female
  Weight: 63 kg

DRUGS (1)
  1. GADOVIST [Suspect]
     Active Substance: GADOBUTROL
     Indication: NUCLEAR MAGNETIC RESONANCE IMAGING BREAST
     Dosage: 7 ML, ONCE
     Route: 042
     Dates: start: 20190404, end: 20190404

REACTIONS (16)
  - Infarction [None]
  - Discomfort [None]
  - Seizure [None]
  - Malaise [None]
  - Dyspnoea [Fatal]
  - Brain hypoxia [None]
  - Visual impairment [None]
  - Nausea [None]
  - Cardiac arrest [Fatal]
  - Coma [None]
  - Loss of consciousness [None]
  - Rash macular [None]
  - Headache [None]
  - Anaphylactic shock [Fatal]
  - Subarachnoid haemorrhage [None]
  - Iron deficiency anaemia [None]

NARRATIVE: CASE EVENT DATE: 20190404
